FAERS Safety Report 9216753 (Version 1)
Quarter: 2013Q2

REPORT INFORMATION
  Report Type: Spontaneous
  Country: CH (occurrence: CH)
  Receive Date: 20130408
  Receipt Date: 20130408
  Transmission Date: 20140414
  Serious: Yes (Hospitalization)
  Sender: FDA-Public Use
  Company Number: CH-PFIZER INC-2013108021

PATIENT
  Age: 89 Year
  Sex: Female

DRUGS (14)
  1. ALDACTONE [Suspect]
     Indication: CARDIAC FAILURE
     Dosage: 25 MG, 2X/DAY
     Route: 048
     Dates: start: 20130228, end: 20130320
  2. DIGOXIN [Interacting]
     Indication: ATRIAL FIBRILLATION
     Dosage: 0.25 MG, 1X/DAY
     Route: 048
     Dates: start: 20130228, end: 20130320
  3. DIGOXIN [Interacting]
     Indication: ATRIAL FLUTTER
  4. OEDEMEX [Interacting]
     Indication: CARDIAC FAILURE
     Dosage: 40 MG, 2X/DAY
     Route: 048
     Dates: start: 20121005, end: 20130320
  5. ASPIRINE [Concomitant]
     Indication: ESSENTIAL HYPERTENSION
     Dosage: 100 MG, 1X/DAY
     Route: 048
  6. SIMCORA [Concomitant]
     Indication: HYPERLIPIDAEMIA
     Dosage: 20 MG, 1X/DAY
     Route: 048
  7. DAFALGAN [Concomitant]
     Indication: PAIN
     Dosage: 1 G, 4X/DAY
     Route: 048
  8. CITALOPRAM ECOSOL [Concomitant]
     Indication: DEPRESSION
     Dosage: 20 MG, 1X/DAY
     Route: 048
  9. QUETIAPINE FUMARATE [Concomitant]
     Indication: ANXIETY DISORDER
     Dosage: 25 MG, 3X/DAY
     Route: 048
  10. DONEPEZIL HYDROCHLORIDE [Concomitant]
     Indication: DEMENTIA
     Dosage: 10 MG, 1X/DAY
     Route: 048
  11. PRAMIPEXOLE [Concomitant]
     Indication: RESTLESSNESS
     Dosage: 0.125 MG, 1X/DAY
     Route: 048
  12. PRAMIPEXOLE [Concomitant]
     Indication: AGITATION
  13. EUTHYROX [Concomitant]
     Indication: HYPOTHYROIDISM
     Dosage: 0.1 MG, 1X/DAY
     Route: 048
  14. CALCIMAGON-D3 [Concomitant]
     Indication: PROPHYLACTIC CHEMOTHERAPY
     Dosage: 1 DF, 1X/DAY
     Route: 048

REACTIONS (11)
  - Medication error [Recovered/Resolved]
  - Drug interaction [Recovering/Resolving]
  - Therapeutic response increased [Recovered/Resolved]
  - Toxicity to various agents [Recovered/Resolved]
  - Apathy [Unknown]
  - Nausea [Recovered/Resolved]
  - Vomiting [Recovered/Resolved]
  - Dehydration [Recovered/Resolved]
  - Asthenia [Recovering/Resolving]
  - Renal failure acute [Recovered/Resolved]
  - Hyperkalaemia [Recovered/Resolved]
